FAERS Safety Report 20936813 (Version 1)
Quarter: 2022Q2

REPORT INFORMATION
  Report Type: Spontaneous
  Country: IT (occurrence: IT)
  Receive Date: 20220609
  Receipt Date: 20220609
  Transmission Date: 20220720
  Serious: Yes (Other)
  Sender: FDA-Public Use
  Company Number: None

PATIENT
  Sex: Female

DRUGS (6)
  1. DENOSUMAB [Suspect]
     Active Substance: DENOSUMAB
     Indication: Product used for unknown indication
     Dosage: 120 MILLIGRAM, AS NECESSARY
     Route: 065
     Dates: start: 20190101, end: 20220503
  2. ZOMETA [Suspect]
     Active Substance: ZOLEDRONIC ACID
     Indication: Product used for unknown indication
     Dosage: 4 MILLIGRAM, AS NECESSARY
     Route: 042
     Dates: start: 20171101
  3. BEVACIZUMAB [Concomitant]
     Active Substance: BEVACIZUMAB
  4. RAMIPRIL [Concomitant]
     Active Substance: RAMIPRIL
  5. XELODA [Concomitant]
     Active Substance: CAPECITABINE
  6. CHOLECALCIFEROL [Concomitant]
     Active Substance: CHOLECALCIFEROL

REACTIONS (2)
  - Swelling [Not Recovered/Not Resolved]
  - Osteonecrosis of jaw [Not Recovered/Not Resolved]

NARRATIVE: CASE EVENT DATE: 20190101
